FAERS Safety Report 7979903-7 (Version None)
Quarter: 2011Q4

REPORT INFORMATION
  Report Type: 
  Country: None (occurrence: None)
  Receive Date: 20111214
  Receipt Date: 20111205
  Transmission Date: 20120403
  Serious: Yes (Other)
  Sender: FDA-Public Use
  Company Number: JP-ASTRAZENECA-2011SE74633

PATIENT
  Sex: Male

DRUGS (2)
  1. ANTICOAGULATION DRUG [Concomitant]
     Route: 065
  2. ZOLADEX [Suspect]
     Indication: PROSTATE CANCER
     Route: 058

REACTIONS (2)
  - HAEMATOMA [None]
  - INDURATION [None]
